FAERS Safety Report 6781713-3 (Version None)
Quarter: 2010Q2

REPORT INFORMATION
  Report Type: 
  Country: None (occurrence: None)
  Receive Date: 20100616
  Receipt Date: 20100602
  Transmission Date: 20101027
  Serious: Yes (Hospitalization)
  Sender: FDA-Public Use
  Company Number: 1000014442

PATIENT
  Age: 79 Year
  Sex: Female

DRUGS (7)
  1. ESCITALOPRAM [Suspect]
     Indication: DEPRESSION
     Dosage: 10 MG (10 MG, 1 IN 1 D), ORAL
     Route: 048
     Dates: start: 20090519, end: 20090720
  2. LERCAN (10 MILLIGRAM, TABLETS) [Suspect]
     Indication: HYPERTENSION
     Dosage: 1 DOSAGE FORMS (1 DOSAGE FORMS, 1 IN 1 D), ORAL
     Route: 048
     Dates: start: 20090218, end: 20090720
  3. TANAKAN (40 MILLIGRAM, TABLETS) [Suspect]
     Indication: AMNESTIC DISORDER
     Dosage: 3 DOSAGE FORMS (3 DOSAGE FORMS, 1 IN 1 D), ORAL
     Route: 048
     Dates: start: 20090218, end: 20090720
  4. EZETROL (10 MILLIGRAM, TABLETS) [Suspect]
     Indication: DYSLIPIDAEMIA
     Dosage: 1 DOSAGE FORMS (1 DOSAGE FORMS, 1 IN 1 D), ORAL
     Route: 048
     Dates: start: 20050718, end: 20090720
  5. STILNOX (10 MILLIGRAM, TABLETS) [Suspect]
     Indication: INSOMNIA
     Dosage: 0.5 DOSAGE FORMS (0.5 DOSAGE FORMS, 1 IN 1 D), ORAL
     Route: 048
     Dates: start: 20051018, end: 20090720
  6. PLAVIX [Suspect]
     Indication: ARTERIAL DISORDER
     Dosage: 1 DOSAGE FORMS (1 DOSAGE FORMS, 1 IN 1 D), ORAL
     Route: 048
     Dates: start: 20040917, end: 20090720
  7. SOTALOL [Concomitant]

REACTIONS (4)
  - GASTROOESOPHAGEAL REFLUX DISEASE [None]
  - HEPATITIS ACUTE [None]
  - MELAENA [None]
  - OROPHARYNGEAL PAIN [None]
